FAERS Safety Report 21026675 (Version 1)
Quarter: 2022Q2

REPORT INFORMATION
  Report Type: Spontaneous
  Country: US (occurrence: None)
  Receive Date: 20220629
  Receipt Date: 20220629
  Transmission Date: 20220721
  Serious: No
  Sender: FDA-Public Use
  Company Number: None

PATIENT
  Age: 89 Year
  Sex: Male
  Weight: 90.9 kg

DRUGS (3)
  1. PAXLOVID [Suspect]
     Active Substance: NIRMATRELVIR\RITONAVIR
     Indication: COVID-19
     Dates: start: 20220617, end: 20220621
  2. HYDROCORTISONE [Concomitant]
     Active Substance: HYDROCORTISONE
  3. PEMBROLIZUMAB [Concomitant]
     Active Substance: PEMBROLIZUMAB

REACTIONS (5)
  - Cough [None]
  - Nasal congestion [None]
  - Nasopharyngitis [None]
  - Suspected COVID-19 [None]
  - Rebound effect [None]

NARRATIVE: CASE EVENT DATE: 20220626
